FAERS Safety Report 12885564 (Version 1)
Quarter: 2016Q4

REPORT INFORMATION
  Report Type: Spontaneous
  Country: US (occurrence: US)
  Receive Date: 20161026
  Receipt Date: 20161026
  Transmission Date: 20170207
  Serious: Yes (Life-Threatening)
  Sender: FDA-Public Use
  Company Number: None

PATIENT
  Age: 64 Year
  Sex: Male
  Weight: 80.29 kg

DRUGS (4)
  1. FLOMAX [Suspect]
     Active Substance: TAMSULOSIN HYDROCHLORIDE
     Indication: BENIGN PROSTATIC HYPERPLASIA
     Dosage: 1 CAPSULE ONCE A DAY 1/2 HR FOLLOWING THE SAME MEAL EACH DAY BY MOUTH
     Route: 048
     Dates: start: 20160916, end: 20160917
  2. XANAX [Concomitant]
     Active Substance: ALPRAZOLAM
  3. VITAMIN C [Concomitant]
     Active Substance: ASCORBIC ACID
  4. ADULT MENS MULTI VIT [Concomitant]

REACTIONS (4)
  - Loss of consciousness [None]
  - Nausea [None]
  - Headache [None]
  - Dizziness [None]

NARRATIVE: CASE EVENT DATE: 20160916
